FAERS Safety Report 24147603 (Version 1)
Quarter: 2024Q3

REPORT INFORMATION
  Report Type: Spontaneous
  Country: US (occurrence: None)
  Receive Date: 20240727
  Receipt Date: 20240727
  Transmission Date: 20241017
  Serious: Yes (unspecified)
  Sender: Public
  Company Number: None

PATIENT
  Age: 31 Year
  Sex: Female
  Weight: 98 kg

DRUGS (2)
  1. AFTERA [Suspect]
     Active Substance: LEVONORGESTREL
     Indication: Post coital contraception
     Dosage: 1 TABLET ORAL?
     Route: 048
     Dates: start: 20240722
  2. Yaz/ nikki [Concomitant]

REACTIONS (7)
  - Oral mucosal eruption [None]
  - Lip swelling [None]
  - Cheilitis [None]
  - Pain [None]
  - Feeding disorder [None]
  - Oral discomfort [None]
  - Pruritus [None]

NARRATIVE: CASE EVENT DATE: 20240723
